FAERS Safety Report 6731402-6 (Version None)
Quarter: 2010Q2

REPORT INFORMATION
  Report Type: 
  Country: None (occurrence: None)
  Receive Date: 20100518
  Receipt Date: 20100518
  Transmission Date: 20101027
  Serious: Yes (Hospitalization)
  Sender: FDA-Public Use
  Company Number: None

PATIENT
  Sex: Male
  Weight: 127.5 kg

DRUGS (11)
  1. ENABLEX [Suspect]
     Indication: URINARY INCONTINENCE
  2. ASCORBIC ACID [Concomitant]
  3. CALCIUM /VITAMIN D [Concomitant]
  4. CYANOCOBALAMIN [Concomitant]
  5. DILTIAZEM [Concomitant]
  6. EZETIMIBE [Concomitant]
  7. FOLIC ACID [Concomitant]
  8. LOVASTATIN [Concomitant]
  9. PYRIDOXINE HCL [Concomitant]
  10. THIAMINE [Concomitant]
  11. WARFARIN SODIUM [Concomitant]

REACTIONS (4)
  - ATAXIA [None]
  - CONFUSIONAL STATE [None]
  - CONSTIPATION [None]
  - MENTAL STATUS CHANGES [None]
